FAERS Safety Report 6826610-X (Version None)
Quarter: 2010Q3

REPORT INFORMATION
  Report Type: 
  Country: None (occurrence: None)
  Receive Date: 20100709
  Receipt Date: 20100630
  Transmission Date: 20110219
  Serious: Yes (Death)
  Sender: FDA-Public Use
  Company Number: IE-PFIZER INC-2010081591

PATIENT
  Age: 71 Year
  Sex: Male

DRUGS (11)
  1. CAMPTOSAR [Suspect]
     Dosage: 360 MG, UNK
     Route: 042
     Dates: start: 20100524, end: 20100526
  2. FLUOROURACIL [Suspect]
     Dosage: 800 MG, UNK
     Route: 017
     Dates: start: 20100524, end: 20100526
  3. CALCIUM FOLINATE [Suspect]
     Dosage: 800 MG, UNK
     Route: 042
     Dates: start: 20100524, end: 20100526
  4. CRESTOR [Concomitant]
  5. ANXICALM [Concomitant]
  6. CAPRIN [Concomitant]
     Dosage: 75 MG, UNK
  7. NEBIVOLOL HCL [Concomitant]
  8. PROTIUM [Concomitant]
     Dosage: 20 MG, UNK
  9. ALOXI [Concomitant]
  10. DEXAMETHASONE [Concomitant]
  11. DOMPERIDONE [Concomitant]

REACTIONS (2)
  - NEUTROPENIC SEPSIS [None]
  - PNEUMOCYSTIS JIROVECI PNEUMONIA [None]
